FAERS Safety Report 7335528-8 (Version None)
Quarter: 2011Q1

REPORT INFORMATION
  Report Type: 
  Country: None (occurrence: None)
  Receive Date: 20110307
  Receipt Date: 20110224
  Transmission Date: 20110831
  Serious: Yes (Other)
  Sender: FDA-Public Use
  Company Number: JP-ASTRAZENECA-2010SE29318

PATIENT
  Age: 81 Year
  Sex: Male

DRUGS (2)
  1. LANTUS [Concomitant]
     Indication: DIABETES MELLITUS
     Dosage: DAILY
     Route: 065
  2. AMIAS [Suspect]
     Indication: HYPERTENSION
     Route: 065
     Dates: start: 20090709

REACTIONS (4)
  - EYE SWELLING [None]
  - HETEROPHORIA [None]
  - DIPLOPIA [None]
  - EYE PAIN [None]
